FAERS Safety Report 5975286-2 (Version None)
Quarter: 2008Q4

REPORT INFORMATION
  Report Type: 
  Country: None (occurrence: None)
  Receive Date: 20081202
  Receipt Date: 20081125
  Transmission Date: 20090506
  Serious: Yes (Other)
  Sender: FDA-Public Use
  Company Number: US-BAYER-200837742NA

PATIENT
  Age: 33 Year
  Sex: Female

DRUGS (1)
  1. MIRENA [Suspect]
     Indication: CONTRACEPTION
     Route: 015
     Dates: start: 20080228, end: 20081010

REACTIONS (5)
  - ABDOMINAL PAIN [None]
  - BREAST TENDERNESS [None]
  - ECTOPIC PREGNANCY WITH INTRAUTERINE DEVICE [None]
  - PERITONEAL HAEMORRHAGE [None]
  - RUPTURED ECTOPIC PREGNANCY [None]
